FAERS Safety Report 16281866 (Version 1)
Quarter: 2019Q2

REPORT INFORMATION
  Report Type: Spontaneous
  Country: CH (occurrence: CH)
  Receive Date: 20190507
  Receipt Date: 20190507
  Transmission Date: 20190711
  Serious: Yes (Other)
  Sender: FDA-Public Use
  Company Number: CH-PFIZER INC-2019190418

PATIENT
  Age: 62 Year
  Sex: Male

DRUGS (25)
  1. VINCRISTINE SULFATE. [Suspect]
     Active Substance: VINCRISTINE SULFATE
     Indication: ACUTE LEUKAEMIA
     Dosage: 1 MG, IN TOTAL
     Route: 041
     Dates: start: 20190416, end: 20190416
  2. LORAZEPAM. [Suspect]
     Active Substance: LORAZEPAM
     Indication: RESTLESS LEGS SYNDROME
     Dosage: 0.5 MG, UNK
     Route: 048
     Dates: start: 20190410
  3. CLEMASTINE [Concomitant]
     Active Substance: CLEMASTINE
     Dosage: 4 MG, IN TOTAL
     Route: 041
     Dates: start: 20190416, end: 20190416
  4. RITUXIMAB. [Suspect]
     Active Substance: RITUXIMAB
     Indication: ACUTE LEUKAEMIA
     Dosage: 125 MG/M2, 50 ML IN TOTAL
     Route: 041
     Dates: start: 20190416, end: 20190416
  5. ALLOPURINOL. [Suspect]
     Active Substance: ALLOPURINOL
     Dosage: 300 MG, DAILY
     Route: 048
     Dates: start: 20190409
  6. VALACICLOVIR [Suspect]
     Active Substance: VALACYCLOVIR HYDROCHLORIDE
     Dosage: 500 MG, 1X/DAY
     Route: 048
     Dates: start: 20190409
  7. DEXAMETHASONE. [Concomitant]
     Active Substance: DEXAMETHASONE
     Dosage: 20 MG, 1X/DAY
     Route: 041
     Dates: start: 20190416, end: 20190417
  8. VITAMIN B12 [Concomitant]
     Active Substance: CYANOCOBALAMIN
     Dosage: 1000 UG, IN TOTAL
     Route: 030
     Dates: start: 20190415, end: 20190415
  9. HEPARIN SODIUM. [Suspect]
     Active Substance: HEPARIN SODIUM
     Dosage: 100000 IU, 1X/DAY
     Route: 058
     Dates: start: 20190410
  10. ONDANSETRON [Suspect]
     Active Substance: ONDANSETRON
     Dosage: 8 MG, 3X/DAY
     Route: 048
     Dates: start: 20190416
  11. IDARUBICIN HCL [Suspect]
     Active Substance: IDARUBICIN HYDROCHLORIDE
     Indication: ACUTE LEUKAEMIA
     Dosage: 10 MG, IN TOTAL
     Route: 041
     Dates: start: 20190416, end: 20190416
  12. VANCOMYCIN [Suspect]
     Active Substance: VANCOMYCIN
     Dosage: 1000 MG, 2X/DAY
     Route: 041
     Dates: start: 20190416
  13. TRAMADOL. [Suspect]
     Active Substance: TRAMADOL
     Dosage: 50 MG, 4X/DAY
     Route: 048
     Dates: start: 20190412
  14. DEXAMETHASONE. [Concomitant]
     Active Substance: DEXAMETHASONE
     Dosage: 20 MG, 1X/DAY
     Route: 048
     Dates: start: 20190411, end: 20190415
  15. MORPHINE [Concomitant]
     Active Substance: MORPHINE
     Dosage: 2 MG, IN TOTAL
     Route: 041
     Dates: start: 20190414, end: 20190414
  16. NEXIUM [Suspect]
     Active Substance: ESOMEPRAZOLE MAGNESIUM
     Dosage: 40 MG, UNK
     Route: 041
     Dates: start: 20190411
  17. CEFEPIME [Concomitant]
     Active Substance: CEFEPIME HYDROCHLORIDE
     Dosage: 2 G, 2X/DAY
     Route: 041
     Dates: start: 20190411
  18. PETHIDINE [Concomitant]
     Active Substance: MEPERIDINE
     Dosage: 25 MG, IN TOTAL
     Route: 041
     Dates: start: 20190416, end: 20190416
  19. FLUCONAZOLE. [Concomitant]
     Active Substance: FLUCONAZOLE
     Dosage: 200 MG, 1X/DAY
     Route: 048
     Dates: start: 20190412, end: 20190416
  20. TORASEMIDE [Suspect]
     Active Substance: TORSEMIDE
     Dosage: 10 MG, 1X/DAY
     Route: 048
     Dates: start: 20190413
  21. PREGABALIN. [Suspect]
     Active Substance: PREGABALIN
     Dosage: 50 MG, IN TOTAL
     Route: 048
     Dates: start: 20190416, end: 20190416
  22. LORAZEPAM. [Suspect]
     Active Substance: LORAZEPAM
     Dosage: UNK
     Dates: start: 20190414
  23. PARACETAMOL [Suspect]
     Active Substance: ACETAMINOPHEN
     Dosage: 1000 MG, AS NEEDED (IN TOTAL)
     Route: 041
     Dates: start: 20190410
  24. MORPHINE [Concomitant]
     Active Substance: MORPHINE
     Dosage: 6 MG, IN TOTAL
     Route: 041
     Dates: start: 20190414, end: 20190414
  25. CO TRIMOXAZOL [Concomitant]
     Active Substance: SULFAMETHOXAZOLE\TRIMETHOPRIM
     Dosage: 160 MG, UNK
     Route: 048
     Dates: start: 20190412, end: 20190415

REACTIONS (1)
  - Hepatic enzyme increased [Not Recovered/Not Resolved]

NARRATIVE: CASE EVENT DATE: 201904
